FAERS Safety Report 5425709-2 (Version None)
Quarter: 2007Q3

REPORT INFORMATION
  Report Type: 
  Country: None (occurrence: None)
  Receive Date: 20070824
  Receipt Date: 20070813
  Transmission Date: 20080115
  Serious: Yes (Other)
  Sender: FDA-Public Use
  Company Number: BE-PFIZER INC-2007068819

PATIENT
  Sex: Female

DRUGS (9)
  1. XANAX [Suspect]
  2. DAKAR [Suspect]
  3. ETANERCEPT [Suspect]
  4. ZANTAC 150 [Concomitant]
  5. CITALOPRAM [Concomitant]
  6. BISOPROLOL [Concomitant]
  7. YASMIN [Concomitant]
  8. ALL OTHER THERAPEUTIC PRODUCTS [Concomitant]
  9. DIHYDERGOT [Concomitant]

REACTIONS (2)
  - DYSKINESIA [None]
  - POSITRON EMISSION TOMOGRAM ABNORMAL [None]
